FAERS Safety Report 4799705-2 (Version None)
Quarter: 2005Q4

REPORT INFORMATION
  Report Type: 
  Country: None (occurrence: None)
  Receive Date: 20051011
  Receipt Date: 20050928
  Transmission Date: 20060501
  Serious: Yes (Hospitalization, Other)
  Sender: FDA-Public Use
  Company Number: 2005135276

PATIENT
  Sex: 0

DRUGS (1)
  1. ZELDOX (CAPSULES) (ZIPRASIDONE) [Suspect]
     Indication: MENTAL DISORDER
     Dosage: UNK (20 MG, 2 IN 1 D), ORAL
     Route: 048

REACTIONS (3)
  - AGITATION [None]
  - OVERDOSE [None]
  - SUICIDE ATTEMPT [None]
